FAERS Safety Report 11392927 (Version 3)
Quarter: 2016Q1

REPORT INFORMATION
  Report Type: Report from Study
  Country: GB (occurrence: GB)
  Receive Date: 20150818
  Receipt Date: 20160215
  Transmission Date: 20160525
  Serious: Yes (Hospitalization, Disabling)
  Sender: FDA-Public Use
  Company Number: GB-ABBVIE-15K-167-1444269-00

PATIENT
  Age: 36 Year
  Sex: Female
  Weight: 38.6 kg

DRUGS (1)
  1. HUMIRA [Suspect]
     Active Substance: ADALIMUMAB
     Indication: PRODUCT USED FOR UNKNOWN INDICATION
     Route: 058
     Dates: start: 20141218, end: 20150617

REACTIONS (17)
  - Anaemia [Unknown]
  - Pleural effusion [Unknown]
  - Multiple organ dysfunction syndrome [Unknown]
  - Septic shock [Unknown]
  - Respiratory failure [Unknown]
  - Pyrexia [Recovering/Resolving]
  - Anuria [Unknown]
  - Obstructive airways disorder [Recovering/Resolving]
  - Sepsis [Not Recovered/Not Resolved]
  - Lung abscess [Recovered/Resolved with Sequelae]
  - Pneumonia [Recovered/Resolved with Sequelae]
  - Haemoptysis [Unknown]
  - Oropharyngeal pain [Unknown]
  - Weight decreased [Recovering/Resolving]
  - Rhabdomyolysis [Unknown]
  - Pneumonia streptococcal [Not Recovered/Not Resolved]
  - Organising pneumonia [Unknown]

NARRATIVE: CASE EVENT DATE: 2015
